FAERS Safety Report 5405477-0 (Version None)
Quarter: 2007Q3

REPORT INFORMATION
  Report Type: 
  Country: None (occurrence: None)
  Receive Date: 20070803
  Receipt Date: 20070723
  Transmission Date: 20080115
  Serious: Yes (Other)
  Sender: FDA-Public Use
  Company Number: US-PFIZER INC-2007060270

PATIENT
  Sex: Female
  Weight: 73.5 kg

DRUGS (3)
  1. CELEBREX [Suspect]
     Indication: OSTEOARTHRITIS
     Dates: start: 20020101, end: 20070701
  2. BEXTRA [Suspect]
     Indication: OSTEOARTHRITIS
  3. OXAPROZIN [Suspect]
     Indication: OSTEOARTHRITIS
     Dates: start: 20070704, end: 20070712

REACTIONS (2)
  - DYSPNOEA [None]
  - HYPERSENSITIVITY [None]
